FAERS Safety Report 19920139 (Version 1)
Quarter: 2021Q4

REPORT INFORMATION
  Report Type: Report from Study
  Country: KR (occurrence: KR)
  Receive Date: 20211005
  Receipt Date: 20211005
  Transmission Date: 20220303
  Serious: Yes (Hospitalization)
  Sender: FDA-Public Use
  Company Number: KR-VIIV HEALTHCARE LIMITED-KR2021GSK203305

PATIENT
  Age: 28 Year
  Sex: Male
  Weight: 67.4 kg

DRUGS (25)
  1. DOLUTEGRAVIR SODIUM\LAMIVUDINE [Suspect]
     Active Substance: DOLUTEGRAVIR SODIUM\LAMIVUDINE
     Indication: HIV infection
     Dosage: 1 DF, 1D
     Route: 048
     Dates: start: 20201201
  2. DIROL [Concomitant]
     Indication: Pain prophylaxis
     Dosage: 400 MG, TID
     Route: 048
     Dates: start: 20201128, end: 20201208
  3. DIROL [Concomitant]
     Indication: Colitis
     Dosage: 400 MG, TID
     Route: 048
     Dates: start: 20210806, end: 20210910
  4. FUMERON EYE DROP [Concomitant]
     Indication: Conjunctivitis
     Dosage: 1 GTT, QID
     Route: 050
     Dates: start: 20210118, end: 20210201
  5. OROCIN EYE DROP [Concomitant]
     Indication: Conjunctivitis
     Dosage: 1 GTT, QID
     Route: 050
     Dates: start: 20210118, end: 20210201
  6. ADIPAM TABLET [Concomitant]
     Indication: Rash papular
     Dosage: 1 DF, TID
     Route: 048
     Dates: start: 20210104, end: 20210117
  7. ALLETINE [Concomitant]
     Indication: Rash papular
     Dosage: 1 DF, 1D
     Route: 048
     Dates: start: 20210104, end: 20210117
  8. FLUARIX TETRA [Concomitant]
     Active Substance: INFLUENZA VIRUS VACCINE
     Indication: Antiviral prophylaxis
     Dosage: 0.5 ML, 1D
     Route: 030
     Dates: start: 20201207, end: 20201207
  9. XYZAL [Concomitant]
     Active Substance: LEVOCETIRIZINE DIHYDROCHLORIDE
     Indication: Dermatitis atopic
     Dosage: 1 DF, 1D
     Route: 048
     Dates: start: 20201126, end: 20201208
  10. TWOLION [Concomitant]
     Indication: Dermatitis atopic
     Dosage: 10 MG, BID
     Route: 048
     Dates: start: 20201126, end: 20201208
  11. MEGACE SUSPENSION [Concomitant]
     Indication: Decreased appetite
     Dosage: 10 ML, BID
     Route: 048
     Dates: start: 20201126, end: 20201208
  12. URSODIOL [Concomitant]
     Active Substance: URSODIOL
     Indication: Aspartate aminotransferase increased
     Dosage: 1 DF, TID
     Route: 048
     Dates: start: 20201201, end: 20201208
  13. URSODIOL [Concomitant]
     Active Substance: URSODIOL
     Indication: Alanine aminotransferase increased
  14. FLASINYL [Concomitant]
     Indication: Colitis
     Dosage: 2 DF, TID
     Route: 048
     Dates: start: 20201126, end: 20201214
  15. SULFAMETHOXAZOLE\TRIMETHOPRIM [Concomitant]
     Active Substance: SULFAMETHOXAZOLE\TRIMETHOPRIM
     Indication: Infection prophylaxis
     Dosage: 1 DF, 1D
     Route: 048
     Dates: start: 20201125, end: 20210214
  16. TOPISOL MILK LOTION [Concomitant]
     Indication: Dermatitis
     Dosage: PRN (AS REQUIRED), 1D
     Route: 050
     Dates: start: 20210609, end: 20210711
  17. BENZOYL PEROXIDE\CLINDAMYCIN PHOSPHATE [Concomitant]
     Active Substance: BENZOYL PEROXIDE\CLINDAMYCIN PHOSPHATE
     Indication: Acne
     Dosage: PRN (AS REQUIRED, 3% ), 1D
     Route: 050
     Dates: start: 20210609, end: 20210711
  18. ELIDEL [Concomitant]
     Active Substance: PIMECROLIMUS
     Indication: Dermatitis
     Dosage: PRN (AS REQUIRED,1%), BID
     Route: 050
     Dates: start: 20210414, end: 20210608
  19. PENNEL [Concomitant]
     Indication: Aspartate aminotransferase increased
     Dosage: 1 DF, TID
     Route: 048
     Dates: start: 20201201, end: 20201208
  20. PENNEL [Concomitant]
     Indication: Alanine aminotransferase increased
     Dosage: 1 DF, TID
     Route: 048
     Dates: start: 20210223, end: 20210323
  21. ALLEGRA [Concomitant]
     Active Substance: FEXOFENADINE HYDROCHLORIDE
     Indication: Dermatitis
     Dosage: 1 DF, 1D
     Route: 048
     Dates: start: 20210203, end: 20210218
  22. ALLERGINON [Concomitant]
     Indication: Dermatitis
     Dosage: 20 MG, 1D
     Route: 048
     Dates: start: 20210203, end: 20210218
  23. ESROBAN OINTMENT [Concomitant]
     Indication: Eosinophilic pustular folliculitis
     Dosage: 1 GTT, PRN
     Route: 050
     Dates: start: 20210203, end: 20210218
  24. RAVELIA LOTION [Concomitant]
     Indication: Dermatitis contact
     Dosage: 1 GTT, 1D
     Route: 050
     Dates: start: 20210219, end: 20210314
  25. LIDOMEX CREAM [Concomitant]
     Indication: Dermatitis contact
     Dosage: 1 GTT, BID
     Route: 050
     Dates: start: 20210219, end: 20210314

REACTIONS (1)
  - Anogenital warts [Recovered/Resolved]

NARRATIVE: CASE EVENT DATE: 20210119
